FAERS Safety Report 7918510-9 (Version None)
Quarter: 2011Q4

REPORT INFORMATION
  Report Type: 
  Country: None (occurrence: None)
  Receive Date: 20111116
  Receipt Date: 20111031
  Transmission Date: 20120403
  Serious: No
  Sender: FDA-Public Use
  Company Number: US-COVIDIEN/TYCO HEALTHCARE/MALLINCKRODT-T201102325

PATIENT
  Sex: Female
  Weight: 56.689 kg

DRUGS (6)
  1. FENTANYL [Concomitant]
     Dosage: 25 UG/HR, Q72 HRS
  2. FENTANYL [Concomitant]
     Dosage: 50 UG/HR, Q72 HRS
     Dates: end: 20111001
  3. VITAMIN D [Concomitant]
     Dosage: UNK
  4. FENTANYL-100 [Suspect]
     Indication: CANCER PAIN
     Dosage: 50 UG/HR, Q72 HRS
     Route: 062
     Dates: start: 20111001
  5. HYDROCODONE BITARTRATE [Concomitant]
     Indication: PAIN
     Dosage: Q 4 HOURS PRN
  6. VITAMIN C                          /00008001/ [Concomitant]
     Dosage: UNK

REACTIONS (1)
  - APPLICATION SITE EROSION [None]
